FAERS Safety Report 6259966-X (Version None)
Quarter: 2009Q3

REPORT INFORMATION
  Report Type: 
  Country: None (occurrence: None)
  Receive Date: 20090706
  Receipt Date: 20090626
  Transmission Date: 20100115
  Serious: Yes (Disabling)
  Sender: FDA-Public Use
  Company Number: ADR5782009

PATIENT
  Sex: Female

DRUGS (2)
  1. SERTRALINE [Suspect]
     Indication: DEPRESSION
     Dosage: ORAL
     Route: 048
  2. IBUPROFEN [Concomitant]

REACTIONS (1)
  - OSTEONECROSIS [None]
